FAERS Safety Report 5534673-7 (Version None)
Quarter: 2007Q4

REPORT INFORMATION
  Report Type: 
  Country: None (occurrence: None)
  Receive Date: 20071205
  Receipt Date: 20071204
  Transmission Date: 20080405
  Serious: Yes (Death, Hospitalization)
  Sender: FDA-Public Use
  Company Number: FR-SANOFI-SYNTHELABO-F01200701594

PATIENT
  Sex: Female

DRUGS (3)
  1. GEMZAR [Suspect]
     Dosage: 1000 MG
     Route: 041
     Dates: start: 20071002, end: 20071002
  2. ELOXATIN [Suspect]
     Indication: SARCOMA
     Dosage: 100 MG
     Route: 041
     Dates: start: 20071002, end: 20071002
  3. BACTRIM [Concomitant]

REACTIONS (4)
  - ANXIETY [None]
  - DYSPNOEA [None]
  - HAEMOPTYSIS [None]
  - THROMBOCYTOPENIA [None]
